FAERS Safety Report 9065832 (Version 1)
Quarter: 2013Q1

REPORT INFORMATION
  Report Type: Spontaneous
  Country: US (occurrence: US)
  Receive Date: 20130131
  Receipt Date: 20130131
  Transmission Date: 20140127
  Serious: No
  Sender: FDA-Public Use
  Company Number: US-ABBOTT-12P-163-1017292-00

PATIENT
  Age: 22 Year
  Sex: Female

DRUGS (3)
  1. HUMIRA [Suspect]
     Indication: COLITIS ULCERATIVE
  2. HUMIRA [Suspect]
  3. LIALDA [Concomitant]
     Indication: COLITIS ULCERATIVE
     Dosage: 4 TABLETS DAILY
     Route: 048

REACTIONS (2)
  - Injection site bruising [Not Recovered/Not Resolved]
  - Colitis ulcerative [Not Recovered/Not Resolved]
